FAERS Safety Report 8837751 (Version 3)
Quarter: 2012Q4

REPORT INFORMATION
  Report Type: Report from Study
  Country: FR (occurrence: FR)
  Receive Date: 20121012
  Receipt Date: 20121120
  Transmission Date: 20130627
  Serious: Yes (Hospitalization)
  Sender: FDA-Public Use
  Company Number: FR-PFIZER INC-2012246145

PATIENT
  Age: 58 Year
  Sex: Male

DRUGS (4)
  1. AXITINIB [Suspect]
     Indication: COLORECTAL CANCER METASTATIC
     Dosage: 5 mg, 2x/day
     Route: 048
     Dates: start: 20120620, end: 20120626
  2. AXITINIB [Suspect]
     Dosage: 5 mg, 2x/day
     Route: 048
     Dates: start: 20120704, end: 20120710
  3. AXITINIB [Suspect]
     Dosage: 5 mg, 2x/day
     Route: 048
     Dates: start: 20120718, end: 20120724
  4. AXITINIB [Suspect]
     Dosage: 5 mg, 2x/day
     Route: 048
     Dates: start: 20120801, end: 20120906

REACTIONS (1)
  - Pneumonia [Recovering/Resolving]
